FAERS Safety Report 4939992-0 (Version None)
Quarter: 2006Q1

REPORT INFORMATION
  Report Type: 
  Country: None (occurrence: None)
  Receive Date: 20060310
  Receipt Date: 20060127
  Transmission Date: 20060701
  Serious: Yes (Death, Hospitalization)
  Sender: FDA-Public Use
  Company Number: US-BRISTOL-MYERS SQUIBB COMPANY-13264205

PATIENT
  Age: 62 Year
  Sex: Male

DRUGS (7)
  1. CETUXIMAB [Suspect]
     Indication: NON-SMALL CELL LUNG CANCER
     Dosage: FIRST INFUSION.
     Route: 042
     Dates: start: 20060120, end: 20060120
  2. METFORMIN [Concomitant]
     Dates: start: 20040101, end: 20060125
  3. MS CONTIN [Concomitant]
     Dates: start: 20040101, end: 20060125
  4. MORPHINE SULFATE [Concomitant]
     Dates: start: 20050101, end: 20060125
  5. TRAZODONE HCL [Concomitant]
     Dates: start: 20050101, end: 20060125
  6. COLACE [Concomitant]
     Dates: start: 20050101, end: 20060125
  7. FESO4 [Concomitant]
     Dates: start: 20050101, end: 20060125

REACTIONS (2)
  - DYSPNOEA [None]
  - MALIGNANT NEOPLASM PROGRESSION [None]
